FAERS Safety Report 6161971-9 (Version None)
Quarter: 2009Q2

REPORT INFORMATION
  Report Type: 
  Country: None (occurrence: None)
  Receive Date: 20090417
  Receipt Date: 20090403
  Transmission Date: 20091009
  Serious: Yes (Other)
  Sender: FDA-Public Use
  Company Number: 2009S1004911

PATIENT
  Age: 69 Year
  Sex: Female
  Weight: 77.1115 kg

DRUGS (25)
  1. FENTANYL TRANSDERMAL SYSTEM [Suspect]
     Indication: ARTHRALGIA
     Dosage: 50 UG; EVERY HOUR; TRANSDERMAL
     Route: 062
     Dates: start: 20070601
  2. FENTANYL TRANSDERMAL SYSTEM [Suspect]
     Indication: ARTHRALGIA
     Dosage: 50 UG; EVERY HOUR; TRANSDERMAL
     Route: 062
     Dates: start: 20070601
  3. ALBUTEROL [Concomitant]
  4. PREDNISONE [Concomitant]
  5. AMLODIPINE [Concomitant]
  6. PROMETHAZINE [Concomitant]
  7. ACCOLATE [Concomitant]
  8. PANTOPRAZOLE SODIUM [Concomitant]
  9. IRON [Concomitant]
  10. TUMS [Concomitant]
  11. MYLANTA SUPREME [Concomitant]
  12. ANTI-DIARRHEAL [Concomitant]
  13. NERVE RELAXER [Concomitant]
  14. AYR SALINE [Concomitant]
  15. TYZINE HCL [Concomitant]
  16. MIACALCIN [Concomitant]
  17. PROAIR HFA [Concomitant]
  18. CALCIUM + VITAMIN D [Concomitant]
  19. PANGESTYME [Concomitant]
  20. KENALOG [Concomitant]
  21. MELATONIN [Concomitant]
  22. BIOTIN [Concomitant]
  23. B VITAMIN COMP [Concomitant]
  24. FOLIC ACID [Concomitant]
  25. DRUGS FOR OBSTRUCTIVE AIRWAY DISEASE [Concomitant]

REACTIONS (7)
  - ASTHMA [None]
  - BRONCHITIS [None]
  - ELECTROLYTE IMBALANCE [None]
  - NAUSEA [None]
  - VIRAL INFECTION [None]
  - VOMITING [None]
  - WHEEZING [None]
